FAERS Safety Report 4731410-0 (Version None)
Quarter: 2005Q3

REPORT INFORMATION
  Report Type: 
  Country: None (occurrence: None)
  Receive Date: 20050802
  Receipt Date: 20050111
  Transmission Date: 20060218
  Serious: Yes (Hospitalization, Other)
  Sender: FDA-Public Use
  Company Number: GBWYE331311JAN05

PATIENT
  Sex: Female

DRUGS (1)
  1. ENBREL [Suspect]
     Indication: DRUG USE FOR UNKNOWN INDICATION
     Dosage: UNKNOWN
     Dates: start: 20041207

REACTIONS (8)
  - CUTANEOUS VASCULITIS [None]
  - DIALYSIS [None]
  - INJECTION SITE REACTION [None]
  - LOSS OF CONSCIOUSNESS [None]
  - MALAISE [None]
  - NECROTISING FASCIITIS [None]
  - RENAL FAILURE [None]
  - SKIN EXFOLIATION [None]
